FAERS Safety Report 22390111 (Version 1)
Quarter: 2023Q2

REPORT INFORMATION
  Report Type: Spontaneous
  Country: US (occurrence: None)
  Receive Date: 20230530
  Receipt Date: 20230530
  Transmission Date: 20230721
  Serious: Yes (unspecified)
  Sender: FDA-Public Use
  Company Number: None

PATIENT
  Age: 67 Year
  Sex: Female
  Weight: 67.5 kg

DRUGS (8)
  1. TOBRAMYCIN AND DEXAMETHASONE [Suspect]
     Active Substance: DEXAMETHASONE\TOBRAMYCIN
     Indication: Cataract operation
     Dosage: OTHER QUANTITY : 4 DROP(S);?FREQUENCY : 4 TIMES A DAY;?
     Route: 047
  2. OFLOXACIN [Suspect]
     Active Substance: OFLOXACIN
     Dosage: OTHER QUANTITY : 1 DROP(S);?FREQUENCY : 4 TIMES A DAY;?
     Route: 047
  3. ATENOLOL [Concomitant]
  4. entesto [Concomitant]
  5. AMIODARONE [Concomitant]
  6. CARVEDILOL [Concomitant]
     Active Substance: CARVEDILOL
  7. aspirin [Concomitant]
  8. ATORVASTATIN [Concomitant]

REACTIONS (1)
  - Eye infection [None]
